FAERS Safety Report 12167127 (Version 1)
Quarter: 2016Q1

REPORT INFORMATION
  Report Type: Spontaneous
  Country: US (occurrence: US)
  Receive Date: 20160310
  Receipt Date: 20160310
  Transmission Date: 20160526
  Serious: Yes (Hospitalization)
  Sender: FDA-Public Use
  Company Number: US-DRREDDYS-USA/USA/16/0077776

PATIENT
  Age: 54 Year
  Sex: Female

DRUGS (16)
  1. TACROLIMUS. [Interacting]
     Active Substance: TACROLIMUS
     Indication: IMMUNOSUPPRESSION
     Route: 048
  2. RANITIDINE [Concomitant]
     Active Substance: RANITIDINE\RANITIDINE HYDROCHLORIDE
     Indication: PRODUCT USED FOR UNKNOWN INDICATION
     Route: 048
  3. TACROLIMUS. [Interacting]
     Active Substance: TACROLIMUS
     Route: 048
  4. FLUCONAZOLE. [Interacting]
     Active Substance: FLUCONAZOLE
     Indication: ORAL CANDIDIASIS
     Route: 048
  5. TAMOXIFEN [Concomitant]
     Active Substance: TAMOXIFEN
     Indication: PRODUCT USED FOR UNKNOWN INDICATION
     Route: 048
  6. TACROLIMUS. [Interacting]
     Active Substance: TACROLIMUS
     Route: 048
  7. NYSTATIN. [Concomitant]
     Active Substance: NYSTATIN
     Indication: PRODUCT USED FOR UNKNOWN INDICATION
     Dosage: 100000 UNITS/ML
     Route: 048
  8. TACROLIMUS. [Interacting]
     Active Substance: TACROLIMUS
     Route: 048
  9. FLUCONAZOLE. [Interacting]
     Active Substance: FLUCONAZOLE
     Route: 042
  10. MYCOPHENOLATE MOFETIL. [Suspect]
     Active Substance: MYCOPHENOLATE MOFETIL
     Indication: IMMUNOSUPPRESSION
  11. MYCOPHENOLATE MOFETIL. [Suspect]
     Active Substance: MYCOPHENOLATE MOFETIL
  12. ACETAMINOPHEN/OXYCODONE [Concomitant]
     Active Substance: ACETAMINOPHEN\OXYCODONE HYDROCHLORIDE
     Indication: PRODUCT USED FOR UNKNOWN INDICATION
     Route: 065
  13. VALGANCICLOVIR [Concomitant]
     Active Substance: VALGANCICLOVIR
     Indication: PRODUCT USED FOR UNKNOWN INDICATION
     Route: 048
  14. DOCUSATE [Concomitant]
     Active Substance: DOCUSATE
     Indication: PRODUCT USED FOR UNKNOWN INDICATION
     Route: 048
  15. TACROLIMUS. [Interacting]
     Active Substance: TACROLIMUS
     Route: 048
  16. SULFAMETHOXAZOLE/TRIMETHOPRIM [Concomitant]
     Active Substance: SULFAMETHOXAZOLE\TRIMETHOPRIM
     Indication: PRODUCT USED FOR UNKNOWN INDICATION
     Route: 048

REACTIONS (10)
  - Urine output decreased [Recovered/Resolved]
  - Mucosal toxicity [Recovered/Resolved]
  - Ulcer haemorrhage [Recovered/Resolved]
  - Oral candidiasis [Recovered/Resolved]
  - Mouth ulceration [Recovered/Resolved]
  - Iron deficiency anaemia [Recovered/Resolved]
  - Drug interaction [Unknown]
  - Leukopenia [Recovered/Resolved]
  - Lip oedema [Recovered/Resolved]
  - Immunosuppressant drug level increased [Recovered/Resolved]
